FAERS Safety Report 16572491 (Version 2)
Quarter: 2019Q4

REPORT INFORMATION
  Report Type: Spontaneous
  Country: US (occurrence: US)
  Receive Date: 20190715
  Receipt Date: 20191003
  Transmission Date: 20200122
  Serious: No
  Sender: FDA-Public Use
  Company Number: US-LEXICON PHARMACEUTICALS, INC-19-1606-00677

PATIENT
  Sex: Female

DRUGS (22)
  1. HYDRALAZINE [Concomitant]
     Active Substance: HYDRALAZINE HYDROCHLORIDE
  2. CREON [Concomitant]
     Active Substance: PANCRELIPASE AMYLASE\PANCRELIPASE LIPASE\PANCRELIPASE PROTEASE
  3. SOMATULINE DEPOT [Concomitant]
     Active Substance: LANREOTIDE ACETATE
  4. CITALOPRAM [Concomitant]
     Active Substance: CITALOPRAM HYDROBROMIDE
  5. ESTROGEN CREAM [Concomitant]
  6. LORAZEPAM. [Concomitant]
     Active Substance: LORAZEPAM
  7. MYLANTA [Concomitant]
     Active Substance: ALUMINUM HYDROXIDE\DIMETHICONE\MAGNESIUM HYDROXIDE
  8. GAVISCON [Concomitant]
     Active Substance: ALUMINUM HYDROXIDE\MAGNESIUM CARBONATE
  9. TELOTRISTAT ETHYL [Suspect]
     Active Substance: TELOTRISTAT ETHYL
     Indication: CARCINOID TUMOUR OF THE SMALL BOWEL
     Route: 048
     Dates: start: 20180911
  10. FLONASE [Concomitant]
     Active Substance: FLUTICASONE PROPIONATE
  11. LOMOTIL [Concomitant]
     Active Substance: ATROPINE SULFATE\DIPHENOXYLATE HYDROCHLORIDE
  12. NORCO [Concomitant]
     Active Substance: ACETAMINOPHEN\HYDROCODONE BITARTRATE
  13. TIZANIDINE. [Concomitant]
     Active Substance: TIZANIDINE
  14. CYCLOBENZAPRINE. [Concomitant]
     Active Substance: CYCLOBENZAPRINE
  15. SUCRALFATE. [Concomitant]
     Active Substance: SUCRALFATE
  16. VOLTAREN [Concomitant]
     Active Substance: DICLOFENAC SODIUM
  17. MULTIVITAMIN [Concomitant]
     Active Substance: VITAMINS
  18. AFINITOR [Suspect]
     Active Substance: EVEROLIMUS
  19. MEDROL [Concomitant]
     Active Substance: METHYLPREDNISOLONE
  20. PHENYLEPHRINE [Concomitant]
     Active Substance: PHENYLEPHRINE HYDROCHLORIDE
  21. TYLENOL [Concomitant]
     Active Substance: ACETAMINOPHEN
  22. VITAMIN B-COMPLEX [Concomitant]
     Active Substance: DEXPANTHENOL\NIACINAMIDE\PYRIDOXINE HYDROCHLORIDE\RIBOFLAVIN 5^-PHOSPHATE SODIUM\THIAMINE HYDROCHLORIDE

REACTIONS (10)
  - Pain [Unknown]
  - Contusion [Unknown]
  - Constipation [Unknown]
  - Sinusitis [Unknown]
  - Depression [Unknown]
  - Headache [Unknown]
  - Nervousness [Unknown]
  - Peripheral swelling [Unknown]
  - Paranasal sinus discomfort [Unknown]
  - Hyperhidrosis [Unknown]
